FAERS Safety Report 20201179 (Version 1)
Quarter: 2021Q4

REPORT INFORMATION
  Report Type: Spontaneous
  Country: MY (occurrence: None)
  Receive Date: 20211217
  Receipt Date: 20211217
  Transmission Date: 20220303
  Serious: Yes (Life-Threatening, Other)
  Sender: FDA-Public Use
  Company Number: MY-ROCHE-2979478

PATIENT
  Age: 45 Year
  Sex: Male

DRUGS (2)
  1. TECENTRIQ [Suspect]
     Active Substance: ATEZOLIZUMAB
     Indication: Hepatocellular carcinoma
     Route: 065
  2. AVASTIN [Suspect]
     Active Substance: BEVACIZUMAB
     Indication: Hepatocellular carcinoma
     Route: 065

REACTIONS (8)
  - Varices oesophageal [Unknown]
  - Vena cava thrombosis [Unknown]
  - Hypothyroidism [Unknown]
  - Hepatic lesion [Unknown]
  - Ascites [Unknown]
  - Weight increased [Unknown]
  - Alpha 1 foetoprotein increased [Unknown]
  - Gingival swelling [Unknown]
